FAERS Safety Report 12548835 (Version 3)
Quarter: 2016Q3

REPORT INFORMATION
  Report Type: Spontaneous
  Country: IT (occurrence: IT)
  Receive Date: 20160712
  Receipt Date: 20160801
  Transmission Date: 20161109
  Serious: Yes (Death, Other)
  Sender: FDA-Public Use
  Company Number: IT-BAYER-2016-131719

PATIENT
  Age: 41 Year
  Sex: Female

DRUGS (1)
  1. JAYDESS [Suspect]
     Active Substance: LEVONORGESTREL
     Dosage: 14 MCG/24HR, CONT
     Route: 015
     Dates: start: 2016

REACTIONS (7)
  - Pyrexia [None]
  - Necrotising fasciitis [Fatal]
  - Fall [None]
  - Limb crushing injury [None]
  - Procedural pain [None]
  - Coma [None]
  - Sepsis [Fatal]

NARRATIVE: CASE EVENT DATE: 2016
